FAERS Safety Report 11204942 (Version 1)
Quarter: 2015Q2

REPORT INFORMATION
  Report Type: Spontaneous
  Country: US (occurrence: US)
  Receive Date: 20150622
  Receipt Date: 20150622
  Transmission Date: 20150821
  Serious: Yes (Other)
  Sender: FDA-Public Use
  Company Number: US-ELI_LILLY_AND_COMPANY-US201506006713

PATIENT
  Sex: Female

DRUGS (2)
  1. CYMBALTA [Suspect]
     Active Substance: DULOXETINE HYDROCHLORIDE
     Indication: STRESS
     Dosage: UNK
     Dates: start: 201403, end: 201405
  2. CYMBALTA [Suspect]
     Active Substance: DULOXETINE HYDROCHLORIDE
     Indication: INSOMNIA

REACTIONS (8)
  - Palpitations [Unknown]
  - Dyspnoea [Unknown]
  - Off label use [Unknown]
  - Drug withdrawal syndrome [Unknown]
  - Chest pain [Unknown]
  - Hyperhidrosis [Unknown]
  - Tremor [Unknown]
  - Paraesthesia [Unknown]
